FAERS Safety Report 15723684 (Version 1)
Quarter: 2018Q4

REPORT INFORMATION
  Report Type: Report from Study
  Country: TH (occurrence: TH)
  Receive Date: 20181214
  Receipt Date: 20181214
  Transmission Date: 20190205
  Serious: Yes (Death)
  Sender: FDA-Public Use
  Company Number: TH-ASTRAZENECA-2018SF61088

PATIENT
  Age: 66 Year
  Sex: Male

DRUGS (1)
  1. IRESSA [Suspect]
     Active Substance: GEFITINIB
     Route: 048
     Dates: start: 201706

REACTIONS (1)
  - Death [Fatal]

NARRATIVE: CASE EVENT DATE: 20181202
